FAERS Safety Report 22156926 (Version 1)
Quarter: 2023Q1

REPORT INFORMATION
  Report Type: Spontaneous
  Country: US (occurrence: US)
  Receive Date: 20230330
  Receipt Date: 20230330
  Transmission Date: 20230418
  Serious: Yes (Other)
  Sender: FDA-Public Use
  Company Number: US-INTRA-CELLULAR THERAPIES, INC.-2023ICT00255

PATIENT
  Age: 60 Year
  Sex: Male
  Weight: 109.57 kg

DRUGS (11)
  1. CAPLYTA [Suspect]
     Active Substance: LUMATEPERONE
     Indication: Schizoaffective disorder bipolar type
     Dosage: 42 MG (1 CAPSULE), 1X/DAY AT BEDTIME
     Route: 048
     Dates: start: 202209
  2. LITHIUM CARBONATE [Concomitant]
     Active Substance: LITHIUM CARBONATE
     Dosage: 300 MG, 1X/DAY
     Route: 048
  3. LITHIUM CARBONATE [Concomitant]
     Active Substance: LITHIUM CARBONATE
     Dosage: 600 MG, 1X/DAY AT BEDTIME
     Route: 048
  4. SEROQUEL [Concomitant]
     Active Substance: QUETIAPINE FUMARATE
     Dosage: 100 MG, 1X/DAY AT BEDTIME
     Route: 048
  5. WELLBUTRIN XL [Concomitant]
     Active Substance: BUPROPION HYDROCHLORIDE
     Dosage: 300 MG, 1X/DAY
     Route: 048
  6. SUCRALFATE [Concomitant]
     Active Substance: SUCRALFATE
     Dosage: 1 GRAM BEFORE MEALS
     Route: 048
  7. REPATHA [Concomitant]
     Active Substance: EVOLOCUMAB
     Dosage: EVERY 2 WEEKS
     Route: 058
  8. PROTONIX [Concomitant]
     Active Substance: PANTOPRAZOLE SODIUM
     Dosage: 40 MG, 1X/DAY
     Route: 048
  9. LEVOTHYROXINE [Concomitant]
     Active Substance: LEVOTHYROXINE
     Dosage: 112 ?G, 1X/DAY IN THE MORNING
     Route: 048
  10. ZETIA [Concomitant]
     Active Substance: EZETIMIBE
     Dosage: 10 MG, 1X/DAY AT BEDTIME
     Route: 048
  11. ATORVASTATIN [Concomitant]
     Active Substance: ATORVASTATIN
     Dosage: 80 MG, 1X/DAY EVERY MORNING
     Route: 048

REACTIONS (3)
  - Suicidal ideation [Unknown]
  - Drug screen positive [Unknown]
  - Off label use [Unknown]

NARRATIVE: CASE EVENT DATE: 20220901
